FAERS Safety Report 10102378 (Version 3)
Quarter: 2014Q2

REPORT INFORMATION
  Report Type: Spontaneous
  Country: JP (occurrence: JP)
  Receive Date: 20140424
  Receipt Date: 20140519
  Transmission Date: 20141212
  Serious: Yes (Life-Threatening, Hospitalization)
  Sender: FDA-Public Use
  Company Number: JP-ELI_LILLY_AND_COMPANY-JP201404002253

PATIENT
  Age: 73 Year
  Sex: Female
  Weight: 60 kg

DRUGS (20)
  1. ZYPREXA [Suspect]
     Indication: CYCLOTHYMIC DISORDER
     Dosage: 5 MG, QD
     Route: 048
     Dates: start: 20140203
  2. SULPIRIDE [Suspect]
     Indication: DEPRESSION
     Dosage: 50 MG, TID
     Route: 048
  3. TANDOSPIRONE CITRATE [Suspect]
     Indication: DEPRESSION
     Dosage: 10 MG, TID
     Route: 048
  4. TANDOSPIRONE CITRATE [Suspect]
     Indication: ANXIETY
  5. LEXAPRO [Suspect]
     Indication: DEPRESSION
     Dosage: 10 MG, QD
     Route: 048
  6. GRANPAM [Concomitant]
     Dosage: 1 DF, TID
     Route: 048
  7. CELECOX [Concomitant]
     Dosage: UNK
     Route: 048
  8. EPENARD [Concomitant]
     Dosage: 1 DF, TID
     Route: 048
  9. CORTRIL                            /00028601/ [Concomitant]
     Indication: BLOOD CORTICOTROPHIN DECREASED
     Route: 048
  10. CORTRIL                            /00028601/ [Concomitant]
     Indication: BLOOD THYROID STIMULATING HORMONE DECREASED
  11. BAZEDOXIFENE [Concomitant]
     Dosage: UNK
     Route: 065
  12. MOHRUS L [Concomitant]
     Dosage: UNK
     Route: 062
  13. MOHRUS [Concomitant]
     Route: 062
  14. AMLODIPINE [Concomitant]
     Dosage: UNK
     Route: 048
  15. PIOGLITAZONE [Concomitant]
     Dosage: UNK
     Route: 048
  16. RABEPRAZOLE SODIUM [Concomitant]
     Dosage: UNK, QD
     Route: 048
  17. URSODEOXYCHOLIC ACID [Concomitant]
     Dosage: 100 MG, TID
     Route: 048
  18. REBAMIPIDE [Concomitant]
     Dosage: 100 MG, TID
  19. CRESTOR [Concomitant]
     Dosage: UNK
     Route: 048
  20. PRIMPERAN [Concomitant]
     Dosage: 1 DF, QD
     Route: 048

REACTIONS (4)
  - Neuroleptic malignant syndrome [Recovering/Resolving]
  - Malaise [Unknown]
  - Decreased appetite [Recovering/Resolving]
  - Off label use [Recovered/Resolved]
